FAERS Safety Report 7297781-9 (Version None)
Quarter: 2011Q1

REPORT INFORMATION
  Report Type: 
  Country: None (occurrence: None)
  Receive Date: 20110214
  Receipt Date: 20110214
  Transmission Date: 20110831
  Serious: Yes (Other)
  Sender: FDA-Public Use
  Company Number: None

PATIENT
  Age: 57 Year
  Sex: Female
  Weight: 102 kg

DRUGS (1)
  1. MOXIFLOXACIN [Suspect]
     Indication: UROSEPSIS
     Dosage: 400 MG ONCE DAILY IV
     Route: 042
     Dates: start: 20110206, end: 20110207

REACTIONS (4)
  - LETHARGY [None]
  - RASH [None]
  - CONVULSION [None]
  - OXYGEN SATURATION DECREASED [None]
